APPROVED DRUG PRODUCT: EFIDAC 24 CHLORPHENIRAMINE MALEATE
Active Ingredient: CHLORPHENIRAMINE MALEATE
Strength: 16MG
Dosage Form/Route: TABLET, EXTENDED RELEASE;ORAL
Application: N019746 | Product #002
Applicant: ALZA CORP
Approved: Nov 18, 1994 | RLD: No | RS: No | Type: DISCN